FAERS Safety Report 25117512 (Version 1)
Quarter: 2025Q1

REPORT INFORMATION
  Report Type: Report from Study
  Country: CN (occurrence: CN)
  Receive Date: 20250325
  Receipt Date: 20250325
  Transmission Date: 20250408
  Serious: Yes (Hospitalization, Other)
  Sender: TAKEDA
  Company Number: CN-TAKEDA-2025TUS028384

PATIENT
  Age: 51 Year
  Sex: Female
  Weight: 55 kg

DRUGS (2)
  1. BRIGATINIB [Suspect]
     Active Substance: BRIGATINIB
     Indication: Non-small cell lung cancer
     Dosage: 90 MILLIGRAM, QD
     Dates: start: 20230822
  2. BRIGATINIB [Suspect]
     Active Substance: BRIGATINIB
     Dosage: 180 MILLIGRAM, QD

REACTIONS (7)
  - Metastases to central nervous system [Unknown]
  - Metastases to bone [Unknown]
  - Endometrial hyperplasia [Recovered/Resolved]
  - Lung adenocarcinoma stage IV [Unknown]
  - Ovarian cyst [Unknown]
  - Post procedural complication [Unknown]
  - Anaemia [Unknown]

NARRATIVE: CASE EVENT DATE: 20250223
